FAERS Safety Report 16693242 (Version 1)
Quarter: 2019Q4

REPORT INFORMATION
  Report Type: Spontaneous
  Country: US (occurrence: US)
  Receive Date: 20190811
  Receipt Date: 20190811
  Transmission Date: 20200122
  Serious: No
  Sender: FDA-Public Use
  Company Number: None

PATIENT
  Age: 43 Year
  Sex: Female

DRUGS (1)
  1. DOXEPIN [Suspect]
     Active Substance: DOXEPIN
     Indication: INSOMNIA
     Dates: start: 20190810, end: 20190811

REACTIONS (4)
  - Anger [None]
  - Skin laceration [None]
  - Intentional self-injury [None]
  - Aggression [None]

NARRATIVE: CASE EVENT DATE: 20190811
